FAERS Safety Report 8486025-8 (Version None)
Quarter: 2012Q3

REPORT INFORMATION
  Report Type: 
  Country: None (occurrence: None)
  Receive Date: 20120703
  Receipt Date: 20120627
  Transmission Date: 20120928
  Serious: Yes (Other)
  Sender: FDA-Public Use
  Company Number: BR-PFIZER INC-2012155512

PATIENT
  Age: 26 Year
  Sex: Male

DRUGS (3)
  1. BRIMONIDINE TARTRATE [Concomitant]
     Indication: GLAUCOMA
     Dosage: ONE DROP IN EACH EYE, AT NIGHT
  2. XALATAN [Suspect]
     Indication: INTRAOCULAR PRESSURE INCREASED
     Dosage: 3 UG (ONE DROP IN EACH EYE), 1X/DAY
     Route: 047
     Dates: start: 20100101, end: 20110101
  3. DORZOLAMIDE HYDROCHLORIDE [Concomitant]
     Indication: GLAUCOMA
     Dosage: ONE DROP IN EACH EYE, TWICE DAILY

REACTIONS (2)
  - GLAUCOMA [None]
  - MYOPIA [None]
